FAERS Safety Report 6085275-8 (Version None)
Quarter: 2009Q1

REPORT INFORMATION
  Report Type: 
  Country: None (occurrence: None)
  Receive Date: 20090211
  Receipt Date: 20080105
  Transmission Date: 20090719
  Serious: Yes (Hospitalization)
  Sender: FDA-Public Use
  Company Number: US-1168154

PATIENT
  Age: 88 Year
  Sex: Male
  Weight: 72.5755 kg

DRUGS (11)
  1. OLOPATADINE HCL [Suspect]
     Indication: NASAL CONGESTION
     Dosage: (NASAL)
     Route: 045
     Dates: start: 20081105, end: 20081117
  2. PLAVIX [Concomitant]
  3. OMEPRAZOLE [Concomitant]
  4. GLYBURIDE [Concomitant]
  5. LISINOPRIL [Concomitant]
  6. ATENOLOL [Concomitant]
  7. DILANTIN [Concomitant]
  8. SIMVASTATIN [Concomitant]
  9. LORATADINE [Concomitant]
  10. ASPIRIN [Concomitant]
  11. METFORMIN [Concomitant]

REACTIONS (1)
  - BREAST CANCER [None]
